FAERS Safety Report 8245622-5 (Version None)
Quarter: 2012Q1

REPORT INFORMATION
  Report Type: 
  Country: None (occurrence: None)
  Receive Date: 20120330
  Receipt Date: 20120322
  Transmission Date: 20120608
  Serious: Yes (Hospitalization)
  Sender: FDA-Public Use
  Company Number: US-BIOGENIDEC-2009BI012681

PATIENT
  Sex: Male
  Weight: 99 kg

DRUGS (2)
  1. AVONEX [Suspect]
     Indication: MULTIPLE SCLEROSIS
     Route: 030
     Dates: start: 20000930
  2. AVONEX [Suspect]
     Route: 030
     Dates: start: 20111216

REACTIONS (8)
  - SURGERY [None]
  - FALL [None]
  - DYSGRAPHIA [None]
  - RASH [None]
  - INTERVERTEBRAL DISC COMPRESSION [None]
  - SPEECH DISORDER [None]
  - CONTUSION [None]
  - TREMOR [None]
